FAERS Safety Report 8726312 (Version 3)
Quarter: 2012Q4

REPORT INFORMATION
  Report Type: Spontaneous
  Country: US (occurrence: None)
  Receive Date: 20120730
  Receipt Date: 20121012
  Transmission Date: 20130627
  Serious: Yes (Disabling, Other)
  Sender: FDA-Public Use
  Company Number: USA/USA/12/0025042

PATIENT
  Age: 17 Year
  Sex: Female
  Weight: 181.44 kg

DRUGS (2)
  1. LEVOFLOXACIN [Suspect]
     Indication: URINARY TRACT INFECTION
     Dosage: 500 MG, 1 IN 1 D, ORAL, 500 MG, 1 IN 1 D, ORAL
     Route: 048
     Dates: start: 201207
  2. LEVOFLOXACIN [Suspect]
     Indication: URINARY TRACT INFECTION
     Dosage: 500 MG, 1 IN 1 D, ORAL, 500 MG, 1 IN 1 D, ORAL

REACTIONS (6)
  - Asthenia [None]
  - Malaise [None]
  - Pain in extremity [None]
  - Activities of daily living impaired [None]
  - Joint swelling [None]
  - Contusion [None]
